FAERS Safety Report 18586394 (Version 22)
Quarter: 2025Q3

REPORT INFORMATION
  Report Type: Spontaneous
  Country: CA (occurrence: CA)
  Receive Date: 20201207
  Receipt Date: 20250701
  Transmission Date: 20251021
  Serious: Yes (Hospitalization, Other)
  Sender: SANOFI AVENTIS
  Company Number: CA-SA-2020SA349303

PATIENT
  Age: 75 Year
  Sex: Male

DRUGS (73)
  1. FLOMAX [Suspect]
     Active Substance: TAMSULOSIN HYDROCHLORIDE
     Indication: Benign prostatic hyperplasia
     Dosage: 0.4 MG, QD
     Route: 048
     Dates: start: 20110811
  2. FLOMAX [Suspect]
     Active Substance: TAMSULOSIN HYDROCHLORIDE
     Indication: Prostatomegaly
  3. FLOMAX [Suspect]
     Active Substance: TAMSULOSIN HYDROCHLORIDE
     Indication: Restless legs syndrome
  4. FUROSEMIDE [Suspect]
     Active Substance: FUROSEMIDE
     Indication: Diuretic therapy
     Dosage: 20 MG, QD
     Route: 048
  5. FUROSEMIDE [Suspect]
     Active Substance: FUROSEMIDE
     Dosage: 20 MG, QD
     Route: 048
  6. FUROSEMIDE [Suspect]
     Active Substance: FUROSEMIDE
     Dosage: 200 MG, QD
     Route: 048
  7. FUROSEMIDE [Suspect]
     Active Substance: FUROSEMIDE
     Dosage: 20 MG, QD
     Route: 048
  8. FUROSEMIDE [Suspect]
     Active Substance: FUROSEMIDE
     Dosage: 200 MG, QD
     Route: 048
  9. FUROSEMIDE [Suspect]
     Active Substance: FUROSEMIDE
     Dosage: 20 MG, QD
     Route: 048
  10. DILTIAZEM HYDROCHLORIDE [Suspect]
     Active Substance: DILTIAZEM HYDROCHLORIDE
     Indication: Angina pectoris
     Dosage: 3 MG, QD
     Route: 048
  11. DILTIAZEM HYDROCHLORIDE [Suspect]
     Active Substance: DILTIAZEM HYDROCHLORIDE
     Dosage: 60 MG, QD
     Route: 048
  12. DILTIAZEM HYDROCHLORIDE [Suspect]
     Active Substance: DILTIAZEM HYDROCHLORIDE
     Dosage: 200 MG, QD
     Route: 048
  13. DILTIAZEM HYDROCHLORIDE [Suspect]
     Active Substance: DILTIAZEM HYDROCHLORIDE
     Dosage: 25 MG, QD
     Route: 048
  14. AMIODARONE HYDROCHLORIDE [Suspect]
     Active Substance: AMIODARONE HYDROCHLORIDE
     Indication: Atrial fibrillation
     Dosage: 200 MG, QD
     Route: 048
  15. AMIODARONE HYDROCHLORIDE [Suspect]
     Active Substance: AMIODARONE HYDROCHLORIDE
     Dosage: 10 MG, QD
     Route: 048
  16. AMIODARONE HYDROCHLORIDE [Suspect]
     Active Substance: AMIODARONE HYDROCHLORIDE
     Dosage: 10 MG, QD
     Route: 048
  17. AMIODARONE HYDROCHLORIDE [Suspect]
     Active Substance: AMIODARONE HYDROCHLORIDE
     Dosage: 200 MG, QD
     Route: 048
  18. AMIODARONE HYDROCHLORIDE [Suspect]
     Active Substance: AMIODARONE HYDROCHLORIDE
     Dosage: 10 MG, QD
     Route: 048
  19. AMLODIPINE BESYLATE [Suspect]
     Active Substance: AMLODIPINE BESYLATE
     Indication: Cardiac failure
     Dosage: 1 MG, QD
     Route: 048
  20. AMLODIPINE BESYLATE [Suspect]
     Active Substance: AMLODIPINE BESYLATE
     Dosage: 10 MG, QD
     Route: 048
  21. AMLODIPINE BESYLATE [Suspect]
     Active Substance: AMLODIPINE BESYLATE
     Dosage: 10 MG, QD
     Route: 048
  22. AMLODIPINE BESYLATE [Suspect]
     Active Substance: AMLODIPINE BESYLATE
     Dosage: 1 MG, QD
     Route: 048
  23. AMLODIPINE BESYLATE [Suspect]
     Active Substance: AMLODIPINE BESYLATE
     Dosage: 10 MG, QD
     Route: 048
  24. AMLODIPINE BESYLATE [Suspect]
     Active Substance: AMLODIPINE BESYLATE
     Dosage: 10 MG, QD
     Route: 048
  25. AMLODIPINE BESYLATE [Suspect]
     Active Substance: AMLODIPINE BESYLATE
     Dosage: 1 MG, QD
     Route: 048
  26. METOPROLOL FUMARATE [Suspect]
     Active Substance: METOPROLOL FUMARATE
     Indication: Cardiac failure
     Dosage: 200 MG, QD
     Route: 048
     Dates: start: 20180103
  27. METOPROLOL FUMARATE [Suspect]
     Active Substance: METOPROLOL FUMARATE
     Dosage: 4 MG, QD
     Route: 048
  28. METOPROLOL FUMARATE [Suspect]
     Active Substance: METOPROLOL FUMARATE
     Route: 048
  29. METOPROLOL FUMARATE [Suspect]
     Active Substance: METOPROLOL FUMARATE
     Dosage: 200 MG, QD
     Route: 048
  30. METOPROLOL FUMARATE [Suspect]
     Active Substance: METOPROLOL FUMARATE
     Dosage: 200 MG, QD
     Route: 048
  31. EMPAGLIFLOZIN [Suspect]
     Active Substance: EMPAGLIFLOZIN
     Indication: Product used for unknown indication
  32. EMPAGLIFLOZIN [Suspect]
     Active Substance: EMPAGLIFLOZIN
  33. CANDESARTAN CILEXETIL [Suspect]
     Active Substance: CANDESARTAN CILEXETIL
     Indication: Cardiac failure
     Dosage: 3 MG, QD
     Route: 048
  34. CANDESARTAN CILEXETIL [Suspect]
     Active Substance: CANDESARTAN CILEXETIL
     Route: 048
  35. CANDESARTAN CILEXETIL [Suspect]
     Active Substance: CANDESARTAN CILEXETIL
     Dosage: 2.5 MG, QD
     Route: 048
  36. CANDESARTAN CILEXETIL [Suspect]
     Active Substance: CANDESARTAN CILEXETIL
     Dosage: 4 MG, QD
     Route: 048
  37. CANDESARTAN CILEXETIL [Suspect]
     Active Substance: CANDESARTAN CILEXETIL
     Dosage: 2.5 MG, QD
     Route: 048
  38. CANDESARTAN CILEXETIL [Suspect]
     Active Substance: CANDESARTAN CILEXETIL
     Dosage: 4 MG, QD
     Route: 048
  39. NITROGLYCERIN [Suspect]
     Active Substance: NITROGLYCERIN
     Indication: Angina pectoris
     Dosage: 1 MG, QD
     Route: 061
  40. METOPROLOL TARTRATE [Suspect]
     Active Substance: METOPROLOL TARTRATE
     Indication: Cardiac failure
     Dosage: 200 MG, QD
     Route: 048
  41. METOPROLOL TARTRATE [Suspect]
     Active Substance: METOPROLOL TARTRATE
     Indication: Product used for unknown indication
     Route: 048
  42. METOPROLOL TARTRATE [Suspect]
     Active Substance: METOPROLOL TARTRATE
     Dosage: 4 MG, QD
     Route: 048
  43. METOPROLOL TARTRATE [Suspect]
     Active Substance: METOPROLOL TARTRATE
     Dosage: 200 MG, QD
     Route: 048
  44. JARDIANCE [Suspect]
     Active Substance: EMPAGLIFLOZIN
     Indication: Cardiac failure
     Dosage: 20 MG, QD
     Route: 048
     Dates: start: 20180725, end: 20201106
  45. JARDIANCE [Suspect]
     Active Substance: EMPAGLIFLOZIN
     Route: 048
     Dates: start: 20180725
  46. PRAMIPEXOLE [Suspect]
     Active Substance: PRAMIPEXOLE
     Indication: Restless legs syndrome
     Dosage: 0.4 MG, QD
     Route: 048
     Dates: start: 20190716
  47. PRAMIPEXOLE [Suspect]
     Active Substance: PRAMIPEXOLE
     Indication: Prostatomegaly
     Dosage: 4 MG
     Route: 048
  48. PRAMIPEXOLE [Suspect]
     Active Substance: PRAMIPEXOLE
     Route: 048
  49. PRAMIPEXOLE [Suspect]
     Active Substance: PRAMIPEXOLE
     Dosage: 0.4 MG, QD
     Route: 048
  50. CANDESARTAN [Suspect]
     Active Substance: CANDESARTAN
     Indication: Cardiac failure
     Dosage: 4 MG, QD
     Route: 048
  51. CANDESARTAN [Suspect]
     Active Substance: CANDESARTAN
     Dosage: 2.5 MG, QD
     Route: 048
  52. CANDESARTAN [Suspect]
     Active Substance: CANDESARTAN
     Dosage: 1 MG, QD
     Route: 048
  53. CANDESARTAN [Suspect]
     Active Substance: CANDESARTAN
     Dosage: 4 MG, QD
     Route: 048
  54. CANDESARTAN [Suspect]
     Active Substance: CANDESARTAN
     Dosage: 4 MG, QD
     Route: 048
  55. PRAMIPEXOLE DIHYDROCHLORIDE [Suspect]
     Active Substance: PRAMIPEXOLE DIHYDROCHLORIDE
     Indication: Restless legs syndrome
     Route: 048
  56. PRAMIPEXOLE DIHYDROCHLORIDE [Suspect]
     Active Substance: PRAMIPEXOLE DIHYDROCHLORIDE
     Indication: Prostatomegaly
     Route: 048
  57. CANDESARTAN [Suspect]
     Active Substance: CANDESARTAN
     Indication: Cardiac failure
     Dosage: 4 MG, QD
     Route: 048
  58. MIRAPEX [Suspect]
     Active Substance: PRAMIPEXOLE DIHYDROCHLORIDE
     Indication: Restless legs syndrome
     Route: 048
     Dates: start: 20190716
  59. NITROGLYCERIN [Suspect]
     Active Substance: NITROGLYCERIN
     Indication: Angina pectoris
     Dosage: 1 MG, QD
     Route: 061
  60. NITROGLYCERIN [Suspect]
     Active Substance: NITROGLYCERIN
     Dosage: 1 MG, QD
     Route: 061
  61. TRAZODONE [Concomitant]
     Active Substance: TRAZODONE HYDROCHLORIDE
     Indication: Antidepressant therapy
     Dosage: 50 MG, QD
     Route: 048
     Dates: start: 20180214
  62. CLOPIDOGREL [Concomitant]
     Active Substance: CLOPIDOGREL BISULFATE
     Indication: Cardiac failure
     Dosage: 75 MG, QD
     Route: 048
     Dates: start: 20180404
  63. CLOPIDOGREL [Concomitant]
     Active Substance: CLOPIDOGREL BISULFATE
     Route: 065
  64. EZETIMIBE [Concomitant]
     Active Substance: EZETIMIBE
     Indication: Dyslipidaemia
     Dosage: 10 MG, QD
     Route: 048
     Dates: start: 20180418
  65. EZETIMIBE [Concomitant]
     Active Substance: EZETIMIBE
     Dosage: 10 MG, QD
     Route: 048
     Dates: start: 20180418
  66. RIVAROXABAN [Concomitant]
     Active Substance: RIVAROXABAN
     Indication: Coronary artery disease
     Dosage: 15 MG, QD
     Route: 048
     Dates: start: 20180214
  67. CRESTOR [Concomitant]
     Active Substance: ROSUVASTATIN CALCIUM
     Indication: Dyslipidaemia
     Route: 048
     Dates: start: 20120524
  68. CRESTOR [Concomitant]
     Active Substance: ROSUVASTATIN CALCIUM
     Route: 048
     Dates: start: 20120524
  69. BICALUTAMIDE [Concomitant]
     Active Substance: BICALUTAMIDE
     Indication: Neoplasm malignant
     Dosage: 50 MG, QD
     Route: 048
  70. BICALUTAMIDE [Concomitant]
     Active Substance: BICALUTAMIDE
     Dosage: 50 MG, QD
     Route: 048
  71. BICALUTAMIDE [Concomitant]
     Active Substance: BICALUTAMIDE
     Dosage: 50 MG, QD
     Route: 048
  72. ROSUVASTATIN CALCIUM [Concomitant]
     Active Substance: ROSUVASTATIN CALCIUM
     Indication: Dyslipidaemia
     Dosage: 20 MG, QD
     Route: 048
     Dates: start: 20120524
  73. ROSUVASTATIN CALCIUM [Concomitant]
     Active Substance: ROSUVASTATIN CALCIUM
     Dosage: 20 MG, QD
     Route: 048

REACTIONS (6)
  - Adrenal insufficiency [Not Recovered/Not Resolved]
  - Troponin increased [Not Recovered/Not Resolved]
  - Hyperthyroidism [Not Recovered/Not Resolved]
  - Hypotension [Not Recovered/Not Resolved]
  - Hypotension [Recovered/Resolved with Sequelae]
  - Off label use [Unknown]

NARRATIVE: CASE EVENT DATE: 20201101
